FAERS Safety Report 10118051 (Version 2)
Quarter: 2014Q2

REPORT INFORMATION
  Report Type: Spontaneous
  Country: US (occurrence: US)
  Receive Date: 20140425
  Receipt Date: 20140425
  Transmission Date: 20141212
  Serious: No
  Sender: FDA-Public Use
  Company Number: US-GILEAD-2013-0078529

PATIENT
  Age: 52 Year
  Sex: Male
  Weight: 79.37 kg

DRUGS (1)
  1. ATRIPLA [Suspect]
     Indication: ACQUIRED IMMUNODEFICIENCY SYNDROME
     Dosage: 1100 MG, UNK

REACTIONS (7)
  - Rash [Unknown]
  - Irritability [Unknown]
  - Dizziness [Unknown]
  - Disturbance in attention [Unknown]
  - Mental impairment [Unknown]
  - Depression [Recovered/Resolved]
  - Confusional state [Unknown]
